FAERS Safety Report 4285599-0 (Version None)
Quarter: 2004Q1

REPORT INFORMATION
  Report Type: 
  Country: None (occurrence: None)
  Receive Date: 20040203
  Receipt Date: 20040119
  Transmission Date: 20041129
  Serious: Yes (Hospitalization)
  Sender: FDA-Public Use
  Company Number: 2004AP00314

PATIENT
  Age: 53 Year
  Sex: Female

DRUGS (1)
  1. AMITRIPTYLINE [Suspect]
     Dosage: 75 MG DAILY

REACTIONS (6)
  - ANXIETY [None]
  - CONVERSION DISORDER [None]
  - HYPOMANIA [None]
  - INSOMNIA [None]
  - IRRITABILITY [None]
  - SUICIDAL IDEATION [None]
